FAERS Safety Report 9527583 (Version 3)
Quarter: 2013Q4

REPORT INFORMATION
  Report Type: Spontaneous
  Country: US (occurrence: None)
  Receive Date: 20130913
  Receipt Date: 20131115
  Transmission Date: 20140711
  Serious: Yes (Other)
  Sender: FDA-Public Use
  Company Number: 2012US000872

PATIENT
  Age: 73 Year
  Sex: Female
  Weight: 72.8 kg

DRUGS (9)
  1. PONATINIB (AP24534) TABLET [Suspect]
     Indication: CHRONIC MYELOID LEUKAEMIA
     Route: 048
     Dates: start: 20091221
  2. ALDARA (IMIQUIMOD) [Concomitant]
  3. AVAPRO (IRBESARTAN) [Concomitant]
  4. COREG (CARVEDILOL) [Concomitant]
  5. EFUDEX (FLUOROURACIL) [Concomitant]
  6. EXJADE (DEFERASIROX) [Concomitant]
  7. LEXAPRO (ESCITALOPRAM OXALATE) [Concomitant]
  8. PROCIT (ERYTHROPOETIN) [Concomitant]
  9. SYNTHROID (LEVOTHYROXINE SODIUM) [Concomitant]

REACTIONS (17)
  - Myocardial ischaemia [None]
  - Cough [None]
  - Palpitations [None]
  - Hypoacusis [None]
  - Influenza like illness [None]
  - Musculoskeletal pain [None]
  - Pain [None]
  - Haemorrhage [None]
  - Haemoglobin decreased [None]
  - Haematocrit decreased [None]
  - White blood cell count decreased [None]
  - Platelet count decreased [None]
  - Alanine aminotransferase increased [None]
  - Aspartate aminotransferase increased [None]
  - Diastolic dysfunction [None]
  - Dyspnoea paroxysmal nocturnal [None]
  - Orthopnoea [None]
